FAERS Safety Report 11005335 (Version 1)
Quarter: 2015Q2

REPORT INFORMATION
  Report Type: Spontaneous
  Country: FR (occurrence: FR)
  Receive Date: 20150409
  Receipt Date: 20150409
  Transmission Date: 20150821
  Serious: Yes (Life-Threatening, Hospitalization, Other)
  Sender: FDA-Public Use
  Company Number: FR-PFIZER INC-2015120371

PATIENT
  Age: 25 Year
  Sex: Female

DRUGS (3)
  1. RELPAX [Suspect]
     Active Substance: ELETRIPTAN HYDROBROMIDE
     Dosage: UNK
     Route: 048
     Dates: start: 20150214, end: 20150214
  2. DAFALGAN CODEINE [Suspect]
     Active Substance: ACETAMINOPHEN\CODEINE PHOSPHATE
     Dosage: UNK
     Route: 048
     Dates: start: 20150214, end: 20150214
  3. NUROFEN [Suspect]
     Active Substance: IBUPROFEN
     Dosage: UNK
     Route: 048
     Dates: start: 20150214, end: 20150214

REACTIONS (11)
  - Vomiting [Unknown]
  - Blood pressure decreased [Unknown]
  - Coma [Recovered/Resolved]
  - Cardiac arrest [Recovered/Resolved]
  - Toxicity to various agents [Recovered/Resolved]
  - Pneumonia [Recovered/Resolved]
  - Heart rate decreased [Unknown]
  - Bradypnoea [Unknown]
  - Drug abuse [Recovered/Resolved]
  - Pneumonia aspiration [Recovered/Resolved]
  - Cardiac failure [Recovered/Resolved]

NARRATIVE: CASE EVENT DATE: 20150214
